FAERS Safety Report 4735403-9 (Version None)
Quarter: 2005Q3

REPORT INFORMATION
  Report Type: 
  Country: None (occurrence: None)
  Receive Date: 20050803
  Receipt Date: 20050803
  Transmission Date: 20060218
  Serious: Yes (Other)
  Sender: FDA-Public Use
  Company Number: None

PATIENT
  Age: 83 Year
  Sex: Female
  Weight: 77.1115 kg

DRUGS (2)
  1. VIGAMOX [Suspect]
     Indication: INFECTION
     Dosage: 1 DROP 4 TIMES A DAY
     Dates: start: 20050615, end: 20050619
  2. MCUGEN INJECTION [Concomitant]

REACTIONS (11)
  - ARTHRALGIA [None]
  - CHONDROPATHY [None]
  - CONTUSION [None]
  - DEPRESSION [None]
  - MOBILITY DECREASED [None]
  - MUSCLE DISORDER [None]
  - NAUSEA [None]
  - PAIN [None]
  - PAIN IN EXTREMITY [None]
  - VOMITING [None]
  - WALKING AID USER [None]
